FAERS Safety Report 21937527 (Version 1)
Quarter: 2023Q1

REPORT INFORMATION
  Report Type: Spontaneous
  Country: US (occurrence: None)
  Receive Date: 20230201
  Receipt Date: 20230201
  Transmission Date: 20230417
  Serious: No
  Sender: FDA-Public Use
  Company Number: None

PATIENT
  Age: 77 Year
  Sex: Male

DRUGS (1)
  1. NOREPINEPHRINE BITARTRATE [Suspect]
     Active Substance: NOREPINEPHRINE BITARTRATE

REACTIONS (9)
  - Unresponsive to stimuli [None]
  - Therapy change [None]
  - Acidosis [None]
  - Therapy change [None]
  - Poor venous access [None]
  - Refusal of treatment by relative [None]
  - Communication disorder [None]
  - Incorrect drug administration rate [None]
  - Near death experience [None]
